FAERS Safety Report 8045782-5 (Version None)
Quarter: 2012Q1

REPORT INFORMATION
  Report Type: 
  Country: None (occurrence: None)
  Receive Date: 20120113
  Receipt Date: 20120111
  Transmission Date: 20120608
  Serious: Yes (Death)
  Sender: FDA-Public Use
  Company Number: US-CELGENEUS-163-21880-11122998

PATIENT
  Sex: Male

DRUGS (14)
  1. COLACE [Concomitant]
     Route: 065
  2. PROAIR HFA [Concomitant]
     Route: 065
  3. REVLIMID [Suspect]
     Indication: MULTIPLE MYELOMA
     Dosage: 5 MILLIGRAM
     Route: 048
  4. MULTI-VITAMINS [Concomitant]
     Route: 065
  5. ALBUTEROL [Concomitant]
     Route: 065
  6. PREDNISONE [Concomitant]
     Route: 065
  7. COUMADIN [Concomitant]
     Route: 065
  8. ATIVAN [Concomitant]
     Route: 065
  9. ACETAMINOPHEN [Concomitant]
     Route: 065
  10. VICODIN [Concomitant]
     Route: 065
  11. ADVAIR DISKUS 100/50 [Concomitant]
     Route: 065
  12. BACTRIM [Concomitant]
     Route: 065
  13. IRON [Concomitant]
     Route: 065
  14. PAXIL [Concomitant]
     Route: 065

REACTIONS (1)
  - DEATH [None]
